FAERS Safety Report 20507451 (Version 1)
Quarter: 2022Q1

REPORT INFORMATION
  Report Type: Spontaneous
  Country: US (occurrence: None)
  Receive Date: 20220222
  Receipt Date: 20220222
  Transmission Date: 20220423
  Serious: Yes (Other)
  Sender: FDA-Public Use
  Company Number: None

PATIENT
  Age: 70 Year
  Sex: Female
  Weight: 44.55 kg

DRUGS (8)
  1. PREGABALIN [Suspect]
     Active Substance: PREGABALIN
     Indication: Fibromyalgia
     Dosage: OTHER QUANTITY : 90 CAPSULE(S);?FREQUENCY : 3 TIMES A DAY;?
     Route: 048
     Dates: start: 20220214, end: 20220217
  2. PREGABALIN [Suspect]
     Active Substance: PREGABALIN
     Indication: Nerve root injury cervical
  3. REMERON [Concomitant]
     Active Substance: MIRTAZAPINE
  4. CANNABIS SATIVA SUBSP. INDICA TOP [Concomitant]
     Active Substance: CANNABIS SATIVA SUBSP. INDICA TOP
  5. FLORINEF ACETATE [Concomitant]
     Active Substance: FLUDROCORTISONE ACETATE
  6. PREGNENOLONE [Concomitant]
     Active Substance: PREGNENOLONE
  7. FISH OIL [Concomitant]
     Active Substance: FISH OIL
  8. VITAMINS [Concomitant]
     Active Substance: VITAMINS

REACTIONS (7)
  - Product substitution issue [None]
  - Headache [None]
  - Occipital neuralgia [None]
  - Condition aggravated [None]
  - Musculoskeletal stiffness [None]
  - Muscle spasms [None]
  - Pain [None]

NARRATIVE: CASE EVENT DATE: 20220215
